FAERS Safety Report 4662393-X (Version None)
Quarter: 2005Q2

REPORT INFORMATION
  Report Type: 
  Country: None (occurrence: None)
  Receive Date: 20050512
  Receipt Date: 20050429
  Transmission Date: 20051028
  Serious: Yes (Hospitalization)
  Sender: FDA-Public Use
  Company Number: 2005069067

PATIENT
  Age: 90 Year
  Sex: Female

DRUGS (5)
  1. FELDENE [Suspect]
     Indication: ARTHRALGIA
     Dosage: ORAL
     Route: 048
     Dates: start: 20040815, end: 20050101
  2. FUROSEMIDE [Suspect]
     Indication: ESSENTIAL HYPERTENSION
     Dosage: ORAL
     Route: 048
     Dates: start: 20040815, end: 20050105
  3. MOCLOBEMIDE (MOCLOBEMIDE) [Suspect]
     Indication: DEPRESSION
     Dosage: ORAL
     Route: 048
     Dates: start: 20040815, end: 20050101
  4. ACETAMINOPHEN [Concomitant]
  5. MACROGOL (MACROGOL) [Concomitant]

REACTIONS (3)
  - DRUG ERUPTION [None]
  - PEMPHIGOID [None]
  - PRURITUS GENERALISED [None]
